FAERS Safety Report 4805299-5 (Version None)
Quarter: 2005Q4

REPORT INFORMATION
  Report Type: 
  Country: None (occurrence: None)
  Receive Date: 20051020
  Receipt Date: 20050713
  Transmission Date: 20060501
  Serious: Yes (Hospitalization)
  Sender: FDA-Public Use
  Company Number: US-MERCK-0507USA01745

PATIENT
  Age: 65 Year
  Sex: Male
  Weight: 84 kg

DRUGS (9)
  1. VIOXX [Suspect]
     Indication: SPONDYLITIS
     Route: 048
     Dates: start: 20001001, end: 20030801
  2. VIOXX [Suspect]
     Route: 048
     Dates: start: 20030801, end: 20031101
  3. VIOXX [Suspect]
     Route: 048
     Dates: start: 20000101, end: 20001001
  4. LIPITOR [Concomitant]
     Indication: HYPERCHOLESTEROLAEMIA
     Route: 048
     Dates: start: 19990101
  5. ASPIRIN [Concomitant]
     Indication: PROPHYLAXIS
     Route: 048
     Dates: start: 19980101, end: 20030101
  6. ASPIRIN [Concomitant]
     Route: 048
     Dates: start: 20030101
  7. ZESTRIL [Concomitant]
     Indication: HYPERTENSION
     Route: 048
     Dates: start: 20030101, end: 20040101
  8. ZESTRIL [Concomitant]
     Indication: CORONARY ARTERY DISEASE
     Route: 048
     Dates: start: 20030101, end: 20040101
  9. KERLONE [Concomitant]
     Indication: HYPERTENSION
     Route: 048

REACTIONS (10)
  - ANGINA UNSTABLE [None]
  - ATRIOVENTRICULAR BLOCK [None]
  - BLOOD PRESSURE INCREASED [None]
  - CARDIAC PERFORATION [None]
  - CORONARY ARTERY DISEASE [None]
  - CORONARY ARTERY STENOSIS [None]
  - DYSPEPSIA [None]
  - PROSTATE CANCER [None]
  - PYREXIA [None]
  - WHEEZING [None]
